FAERS Safety Report 7043920-4 (Version None)
Quarter: 2010Q4

REPORT INFORMATION
  Report Type: 
  Country: None (occurrence: None)
  Receive Date: 20101012
  Receipt Date: 20101012
  Transmission Date: 20110411
  Serious: Yes (Hospitalization)
  Sender: FDA-Public Use
  Company Number: None

PATIENT
  Age: 17 Year
  Sex: Female
  Weight: 77.1115 kg

DRUGS (1)
  1. AZITHROMYCIN [Suspect]
     Indication: URINARY TRACT INFECTION
     Dosage: 4 PO
     Route: 048
     Dates: start: 20090923, end: 20090927

REACTIONS (1)
  - TENDON RUPTURE [None]
